FAERS Safety Report 12538117 (Version 4)
Quarter: 2017Q2

REPORT INFORMATION
  Report Type: Spontaneous
  Country: FR (occurrence: FR)
  Receive Date: 20160707
  Receipt Date: 20170405
  Transmission Date: 20170830
  Serious: Yes (Other)
  Sender: FDA-Public Use
  Company Number: FR-BAXALTA-2016BLT004753

PATIENT
  Age: 49 Year
  Sex: Male

DRUGS (6)
  1. ADVATE [Suspect]
     Active Substance: ANTIHEMOPHILIC FACTOR, HUMAN RECOMBINANT
     Indication: HAEMATOMA
     Dosage: ONE DOSE
     Route: 065
     Dates: start: 2014
  2. LOXEN                              /00639802/ [Concomitant]
     Active Substance: NICARDIPINE
     Indication: PRODUCT USED FOR UNKNOWN INDICATION
     Dosage: 20 MG, 1 TABLET, 3X A DAY
     Route: 048
  3. ADVATE [Suspect]
     Active Substance: ANTIHEMOPHILIC FACTOR, HUMAN RECOMBINANT
     Indication: VASCULAR PSEUDOANEURYSM
     Dosage: EVERY DAY X15 DAYS, THEN 2X A WEEK FOR 15 DAYS
     Route: 042
     Dates: start: 20160530, end: 20160624
  4. FEIBA [Suspect]
     Active Substance: ANTI-INHIBITOR COAGULANT COMPLEX
     Indication: HAEMOPHILIA A WITH ANTI FACTOR VIII
     Dosage: 6000 U, 3X A WEEK, INFUSION
     Route: 065
     Dates: start: 20160630
  5. FEIBA [Suspect]
     Active Substance: ANTI-INHIBITOR COAGULANT COMPLEX
     Indication: HAEMORRHAGE PROPHYLAXIS
  6. ADVATE [Suspect]
     Active Substance: ANTIHEMOPHILIC FACTOR, HUMAN RECOMBINANT
     Indication: HAEMORRHAGE PROPHYLAXIS
     Dosage: ONE INJECTION, 1X A DAY
     Route: 042
     Dates: start: 20160519, end: 20160521

REACTIONS (3)
  - Hepatocellular injury [Not Recovered/Not Resolved]
  - Anti factor VIII antibody increased [Not Recovered/Not Resolved]
  - Factor VIII inhibition [Not Recovered/Not Resolved]

NARRATIVE: CASE EVENT DATE: 20160627
